FAERS Safety Report 5804601-5 (Version None)
Quarter: 2008Q3

REPORT INFORMATION
  Report Type: 
  Country: None (occurrence: None)
  Receive Date: 20080702
  Receipt Date: 20070625
  Transmission Date: 20090109
  Serious: Yes (Other)
  Sender: FDA-Public Use
  Company Number: 504208

PATIENT
  Age: 30 Year
  Sex: Female

DRUGS (4)
  1. KLONOPIN [Suspect]
     Indication: DRUG USE FOR UNKNOWN INDICATION
     Dates: start: 20070616
  2. TYLENOL EXTRA-STRENGTH (PARACETAMOL) 500 MG [Suspect]
     Indication: DRUG USE FOR UNKNOWN INDICATION
     Dosage: ORAL
     Route: 048
     Dates: start: 20070616, end: 20070616
  3. SEROQUEL [Suspect]
     Indication: DRUG USE FOR UNKNOWN INDICATION
     Dates: start: 20070616
  4. ETHANOL (ALCOHOL) [Suspect]
     Indication: DRUG USE FOR UNKNOWN INDICATION
     Dates: start: 20070616

REACTIONS (1)
  - MULTIPLE DRUG OVERDOSE INTENTIONAL [None]
